FAERS Safety Report 23776825 (Version 1)
Quarter: 2024Q2

REPORT INFORMATION
  Report Type: Spontaneous
  Country: US (occurrence: US)
  Receive Date: 20240424
  Receipt Date: 20240424
  Transmission Date: 20240716
  Serious: No
  Sender: FDA-Public Use
  Company Number: US-TAKEDA-2024TUS038530

PATIENT
  Sex: Male

DRUGS (1)
  1. ADDERALL XR [Suspect]
     Active Substance: AMPHETAMINE ASPARTATE\AMPHETAMINE SULFATE\DEXTROAMPHETAMINE SACCHARATE\DEXTROAMPHETAMINE SULFATE
     Indication: Product used for unknown indication
     Dosage: UNK
     Route: 065

REACTIONS (10)
  - Migraine [Recovered/Resolved]
  - Loss of personal independence in daily activities [Recovered/Resolved]
  - Visual impairment [Recovered/Resolved]
  - Product physical issue [Unknown]
  - Product odour abnormal [Unknown]
  - Cognitive disorder [Recovered/Resolved]
  - Abdominal discomfort [Recovered/Resolved]
  - Abnormal behaviour [Recovered/Resolved]
  - Nausea [Recovered/Resolved]
  - Product appearance confusion [Unknown]
